FAERS Safety Report 7084885-9 (Version None)
Quarter: 2010Q4

REPORT INFORMATION
  Report Type: 
  Country: None (occurrence: None)
  Receive Date: 20101027
  Receipt Date: 20101020
  Transmission Date: 20110411
  Serious: Yes (Death, Other)
  Sender: FDA-Public Use
  Company Number: 2010JP006079

PATIENT
  Age: 38 Year
  Sex: Male

DRUGS (2)
  1. PROGRAF [Suspect]
     Indication: LIVER TRANSPLANT
  2. CELLCEPT (MYCOPHENOLATE MOFETIL) [Concomitant]

REACTIONS (15)
  - ATRIOVENTRICULAR BLOCK COMPLETE [None]
  - BRADYCARDIA [None]
  - BRONCHOPULMONARY ASPERGILLOSIS [None]
  - CARDIAC FAILURE [None]
  - CONVULSION [None]
  - CYTOMEGALOVIRUS TEST POSITIVE [None]
  - EMBOLISM ARTERIAL [None]
  - FUNGAL INFECTION [None]
  - LOSS OF CONSCIOUSNESS [None]
  - MULTI-ORGAN FAILURE [None]
  - PERICARDITIS FUNGAL [None]
  - PLEURAL EFFUSION [None]
  - PLEURISY [None]
  - POST PROCEDURAL INFECTION [None]
  - SHOCK [None]
